FAERS Safety Report 15356364 (Version 1)
Quarter: 2018Q3

REPORT INFORMATION
  Report Type: Spontaneous
  Country: FR (occurrence: FR)
  Receive Date: 20180906
  Receipt Date: 20180906
  Transmission Date: 20181010
  Serious: Yes (Other)
  Sender: FDA-Public Use
  Company Number: FR-MERCK KGAA-2054676

PATIENT
  Age: 17 Year
  Sex: Female

DRUGS (2)
  1. NOVOTHYROX [Suspect]
     Active Substance: LEVOTHYROXINE SODIUM
     Indication: HYPOTHYROIDISM
     Dates: start: 201806
  2. NOVOTHYROX [Suspect]
     Active Substance: LEVOTHYROXINE SODIUM

REACTIONS (7)
  - Social fear [None]
  - Hyperthyroidism [None]
  - Self-injurious ideation [None]
  - Fatigue [None]
  - Drug ineffective [None]
  - Depression [None]
  - Wrong technique in product usage process [None]

NARRATIVE: CASE EVENT DATE: 2018
